FAERS Safety Report 9442476 (Version 1)
Quarter: 2013Q3

REPORT INFORMATION
  Report Type: Spontaneous
  Country: US (occurrence: US)
  Receive Date: 20130806
  Receipt Date: 20130806
  Transmission Date: 20140515
  Serious: No
  Sender: FDA-Public Use
  Company Number: US-BAYER-2013-094459

PATIENT
  Age: 83 Year
  Sex: Male

DRUGS (2)
  1. LEVITRA [Suspect]
     Indication: ERECTILE DYSFUNCTION
     Dosage: 20 MG, ONCE DAILY AS NEEDED
     Route: 048
     Dates: start: 201303, end: 201303
  2. AMLODIPINE [Concomitant]

REACTIONS (1)
  - Drug ineffective [None]
